FAERS Safety Report 14346814 (Version 2)
Quarter: 2018Q1

REPORT INFORMATION
  Report Type: Spontaneous
  Country: US (occurrence: US)
  Receive Date: 20180103
  Receipt Date: 20180219
  Transmission Date: 20180509
  Serious: No
  Sender: FDA-Public Use
  Company Number: US-009507513-1712USA004397

PATIENT
  Age: 18 Year
  Sex: Female
  Weight: 60.77 kg

DRUGS (1)
  1. NEXPLANON [Suspect]
     Active Substance: ETONOGESTREL
     Indication: CONTRACEPTION
     Dosage: 1 SINGLE ROD, EVERY THREE YEARS
     Route: 058
     Dates: start: 20170627, end: 20171229

REACTIONS (5)
  - Device kink [Recovering/Resolving]
  - Weight decreased [Unknown]
  - Implant site pain [Unknown]
  - Menstrual disorder [Not Recovered/Not Resolved]
  - Device breakage [Recovering/Resolving]

NARRATIVE: CASE EVENT DATE: 2017
